FAERS Safety Report 6473866-1 (Version None)
Quarter: 2009Q4

REPORT INFORMATION
  Report Type: 
  Country: None (occurrence: None)
  Receive Date: 20091204
  Receipt Date: 20091130
  Transmission Date: 20100525
  Serious: Yes (Other)
  Sender: FDA-Public Use
  Company Number: DE-ROCHE-672366

PATIENT
  Age: 45 Year
  Sex: Female

DRUGS (1)
  1. ROCEPHIN [Suspect]
     Route: 042
     Dates: start: 20091126

REACTIONS (1)
  - PSYCHOTIC DISORDER [None]
